FAERS Safety Report 20050201 (Version 6)
Quarter: 2022Q2

REPORT INFORMATION
  Report Type: Report from Study
  Country: DE (occurrence: DE)
  Receive Date: 20211109
  Receipt Date: 20220628
  Transmission Date: 20220720
  Serious: Yes (Other)
  Sender: FDA-Public Use
  Company Number: DE-TAKEDA-2021TUS067276

PATIENT
  Age: 81 Year
  Sex: Female

DRUGS (55)
  1. TEDUGLUTIDE [Suspect]
     Active Substance: TEDUGLUTIDE
     Indication: Short-bowel syndrome
     Dosage: 4 MILLIGRAM, QD
     Route: 042
     Dates: start: 20141022, end: 201802
  2. TEDUGLUTIDE [Suspect]
     Active Substance: TEDUGLUTIDE
     Indication: Short-bowel syndrome
     Dosage: 4 MILLIGRAM, QD
     Route: 042
     Dates: start: 20141022, end: 201802
  3. TEDUGLUTIDE [Suspect]
     Active Substance: TEDUGLUTIDE
     Indication: Short-bowel syndrome
     Dosage: 4 MILLIGRAM, QD
     Route: 042
     Dates: start: 20141022, end: 201802
  4. TEDUGLUTIDE [Suspect]
     Active Substance: TEDUGLUTIDE
     Indication: Short-bowel syndrome
     Dosage: 4 MILLIGRAM, QD
     Route: 042
     Dates: start: 20141022, end: 201802
  5. TEDUGLUTIDE [Suspect]
     Active Substance: TEDUGLUTIDE
     Dosage: 2 MILLIGRAM, QD
     Route: 042
     Dates: start: 201802, end: 20180523
  6. TEDUGLUTIDE [Suspect]
     Active Substance: TEDUGLUTIDE
     Dosage: 2 MILLIGRAM, QD
     Route: 042
     Dates: start: 201802, end: 20180523
  7. TEDUGLUTIDE [Suspect]
     Active Substance: TEDUGLUTIDE
     Dosage: 2 MILLIGRAM, QD
     Route: 042
     Dates: start: 201802, end: 20180523
  8. TEDUGLUTIDE [Suspect]
     Active Substance: TEDUGLUTIDE
     Dosage: 2 MILLIGRAM, QD
     Route: 042
     Dates: start: 201802, end: 20180523
  9. TEDUGLUTIDE [Suspect]
     Active Substance: TEDUGLUTIDE
     Dosage: 999 MILLIGRAM, QD
     Route: 042
     Dates: start: 20180523
  10. TEDUGLUTIDE [Suspect]
     Active Substance: TEDUGLUTIDE
     Dosage: 999 MILLIGRAM, QD
     Route: 042
     Dates: start: 20180523
  11. TEDUGLUTIDE [Suspect]
     Active Substance: TEDUGLUTIDE
     Dosage: 999 MILLIGRAM, QD
     Route: 042
     Dates: start: 20180523
  12. TEDUGLUTIDE [Suspect]
     Active Substance: TEDUGLUTIDE
     Dosage: 999 MILLIGRAM, QD
     Route: 042
     Dates: start: 20180523
  13. DEVIT [Concomitant]
     Indication: Vitamin D deficiency
     Dosage: 0.06 MILLIGRAM, QD
     Route: 048
     Dates: start: 202001
  14. MAGNESIUM [Concomitant]
     Active Substance: MAGNESIUM
     Indication: Magnesium deficiency
     Dosage: 150 MILLIGRAM, TID
     Route: 048
     Dates: start: 20200115
  15. MAGNESIUM [Concomitant]
     Active Substance: MAGNESIUM
     Dosage: 122 MILLIGRAM
     Route: 048
     Dates: end: 2020
  16. FOSFOMYCIN [Concomitant]
     Active Substance: FOSFOMYCIN
     Indication: Urinary tract infection
     Dosage: UNK
     Route: 065
     Dates: start: 201905, end: 201905
  17. Calcimed [Concomitant]
     Indication: Vitamin supplementation
     Dosage: 0.03 MILLIGRAM, TID
     Route: 048
     Dates: start: 20190309
  18. CALCIUM\CHOLECALCIFEROL [Concomitant]
     Active Substance: CALCIUM\CHOLECALCIFEROL
     Indication: Mineral supplementation
     Dosage: 999 MILLIGRAM, BID
     Route: 048
     Dates: start: 2004, end: 2007
  19. CALCIUM\CHOLECALCIFEROL [Concomitant]
     Active Substance: CALCIUM\CHOLECALCIFEROL
     Indication: Blood calcium decreased
     Dosage: 999 MILLIGRAM, QD
     Route: 048
     Dates: start: 2017, end: 2017
  20. CALCIUM\CHOLECALCIFEROL [Concomitant]
     Active Substance: CALCIUM\CHOLECALCIFEROL
     Indication: Vitamin supplementation
     Dosage: 999 MILLIGRAM, QD
     Route: 048
     Dates: start: 201710, end: 2019
  21. CALCIUM\CHOLECALCIFEROL [Concomitant]
     Active Substance: CALCIUM\CHOLECALCIFEROL
     Dosage: 1250 MILLIGRAM, TID
     Route: 048
     Dates: start: 20190309
  22. CALCIUM\CHOLECALCIFEROL [Concomitant]
     Active Substance: CALCIUM\CHOLECALCIFEROL
     Dosage: 0.03 MILLIGRAM, TID
     Route: 048
     Dates: start: 20190309
  23. Selenase [Concomitant]
     Indication: Selenium deficiency
     Dosage: 0.10 MILLIGRAM, QD
     Route: 048
  24. PANTOPRAZOLE [Concomitant]
     Active Substance: PANTOPRAZOLE
     Indication: Hyperchlorhydria
     Dosage: 40 MILLIGRAM, BID
     Route: 048
     Dates: start: 2004, end: 2018
  25. PANTOPRAZOLE [Concomitant]
     Active Substance: PANTOPRAZOLE
     Dosage: 40 MILLIGRAM, BID
     Route: 048
     Dates: start: 201803
  26. POTASSIUM CITRATE [Concomitant]
     Active Substance: POTASSIUM CITRATE
     Indication: Supplementation therapy
     Dosage: 780 MILLIGRAM, QD
     Route: 048
     Dates: end: 2020
  27. TORSEMIDE [Concomitant]
     Active Substance: TORSEMIDE
     Indication: Hypertension
     Dosage: 10 MILLIGRAM, BID
     Route: 048
     Dates: start: 201205
  28. AMLODIPINE [Concomitant]
     Active Substance: AMLODIPINE BESYLATE
     Indication: Hypertension
     Dosage: 5 MILLIGRAM
     Route: 048
     Dates: start: 201205, end: 2017
  29. LOPERAMIDE [Concomitant]
     Active Substance: LOPERAMIDE
     Indication: Diarrhoea
     Dosage: UNK
     Route: 048
     Dates: start: 2014, end: 201501
  30. LOPERAMIDE [Concomitant]
     Active Substance: LOPERAMIDE
     Dosage: 2 MILLIGRAM
     Route: 048
     Dates: start: 201501, end: 201805
  31. LOPERAMIDE [Concomitant]
     Active Substance: LOPERAMIDE
     Dosage: 2 MILLIGRAM
     Route: 048
     Dates: start: 201805
  32. Nac [Concomitant]
     Indication: Chronic obstructive pulmonary disease
     Dosage: 600 MILLIGRAM, QD
     Route: 065
     Dates: start: 201709, end: 201910
  33. ELIQUIS [Concomitant]
     Active Substance: APIXABAN
     Indication: Anticoagulant therapy
     Dosage: 5 MILLIGRAM, BID
     Route: 048
     Dates: start: 201708
  34. BISOPROLOL [Concomitant]
     Active Substance: BISOPROLOL
     Indication: Hypertension
     Dosage: 2.50 MILLIGRAM, QD
     Route: 048
     Dates: start: 201710
  35. SIMVASTATIN [Concomitant]
     Active Substance: SIMVASTATIN
     Indication: Hypercholesterolaemia
     Dosage: 20 MILLIGRAM, QD
     Route: 048
     Dates: start: 201710
  36. PREDNISOLONE [Concomitant]
     Active Substance: PREDNISOLONE
     Indication: Chronic obstructive pulmonary disease
     Dosage: 10 MILLIGRAM, QOD
     Route: 048
     Dates: start: 2017, end: 2017
  37. FUROSEMIDE [Concomitant]
     Active Substance: FUROSEMIDE
     Indication: Cardiac failure acute
     Dosage: UNK
     Route: 042
     Dates: start: 201801, end: 201801
  38. POTASSIUM [Concomitant]
     Active Substance: POTASSIUM
     Indication: Hypokalaemia
     Dosage: UNK
     Route: 065
     Dates: start: 201801, end: 201801
  39. SULFAMETHOXAZOLE\TRIMETHOPRIM [Concomitant]
     Active Substance: SULFAMETHOXAZOLE\TRIMETHOPRIM
     Indication: Urinary tract infection
     Dosage: UNK
     Route: 065
  40. FOLIC ACID [Concomitant]
     Active Substance: FOLIC ACID
     Indication: Anaemia macrocytic
     Dosage: 5 MILLIGRAM, QD
     Route: 048
     Dates: start: 201801
  41. APIXABAN [Concomitant]
     Active Substance: APIXABAN
     Indication: Atrial fibrillation
     Dosage: UNK
     Route: 065
     Dates: end: 201802
  42. APIXABAN [Concomitant]
     Active Substance: APIXABAN
     Dosage: 25 MILLIGRAM, QD
     Route: 048
     Dates: start: 201803
  43. CHOLECALCIFEROL [Concomitant]
     Active Substance: CHOLECALCIFEROL
     Indication: Vitamin D deficiency
     Dosage: 20 MILLIGRAM, QD
     Route: 048
     Dates: start: 201803
  44. CALCIUM CARBONATE [Concomitant]
     Active Substance: CALCIUM CARBONATE
     Indication: Mineral supplementation
     Dosage: 250 MILLIGRAM, TID
     Route: 048
     Dates: end: 2020
  45. TILIDINE [Concomitant]
     Active Substance: TILIDINE
     Indication: Fracture
     Dosage: 100 MILLIGRAM, BID
     Route: 048
     Dates: start: 201712, end: 2018
  46. CEFUROXIME [Concomitant]
     Active Substance: CEFUROXIME
     Indication: Erysipelas
     Dosage: UNK
     Route: 042
     Dates: start: 201712
  47. CEFUROXIME [Concomitant]
     Active Substance: CEFUROXIME
     Dosage: 500 MILLIGRAM, BID
     Route: 048
     Dates: start: 20171130, end: 201712
  48. OLODATEROL HYDROCHLORIDE\TIOTROPIUM BROMIDE MONOHYDRATE [Concomitant]
     Active Substance: OLODATEROL HYDROCHLORIDE\TIOTROPIUM BROMIDE MONOHYDRATE
     Indication: Chronic obstructive pulmonary disease
     Dosage: UNK UNK, BID
     Route: 055
     Dates: start: 201709
  49. RAMIPRIL [Concomitant]
     Active Substance: RAMIPRIL
     Indication: Hypertension
     Dosage: 5 MILLIGRAM
     Route: 048
     Dates: end: 201810
  50. AMLODIPINE BESYLATE\OLMESARTAN MEDOXOMIL [Concomitant]
     Active Substance: AMLODIPINE BESYLATE\OLMESARTAN MEDOXOMIL
     Indication: Hypertension
     Dosage: 5 MILLIGRAM
     Route: 065
     Dates: end: 2018
  51. TRIMIPRAMINE [Concomitant]
     Active Substance: TRIMIPRAMINE
     Indication: Depression
     Dosage: UNK
     Route: 065
  52. ESCITALOPRAM [Concomitant]
     Active Substance: ESCITALOPRAM OXALATE
     Indication: Depression
     Dosage: UNK
     Route: 065
  53. THYROXINE [Concomitant]
     Active Substance: LEVOTHYROXINE
     Indication: Hypothyroidism
     Dosage: UNK
     Route: 065
     Dates: end: 201810
  54. ASPIRIN [Concomitant]
     Active Substance: ASPIRIN
     Indication: Factor V Leiden mutation
     Dosage: 100 MILLIGRAM, QD
     Route: 048
     Dates: start: 201803
  55. MAGNO SANOL UNO [Concomitant]
     Indication: Magnesium deficiency
     Dosage: 150 MILLIGRAM, TID
     Route: 048
     Dates: start: 20200115

REACTIONS (3)
  - Chronic kidney disease [Recovered/Resolved]
  - Dyspnoea [Recovered/Resolved]
  - Oedema peripheral [Recovered/Resolved]

NARRATIVE: CASE EVENT DATE: 20210701
